FAERS Safety Report 16500407 (Version 1)
Quarter: 2019Q3

REPORT INFORMATION
  Report Type: Spontaneous
  Country: US (occurrence: US)
  Receive Date: 20190628
  Receipt Date: 20190628
  Transmission Date: 20191004
  Serious: Yes (Hospitalization)
  Sender: FDA-Public Use
  Company Number: None

PATIENT
  Age: 39 Year
  Sex: Female
  Weight: 59.4 kg

DRUGS (1)
  1. KENALOG [Suspect]
     Active Substance: TRIAMCINOLONE ACETONIDE
     Indication: SEASONAL ALLERGY
     Dosage: ?          OTHER FREQUENCY:INJECTED 40 MG;OTHER ROUTE:INJECTED TO GLUTE?
     Dates: start: 20190517, end: 20190517

REACTIONS (7)
  - Loss of consciousness [None]
  - Cold sweat [None]
  - Dizziness [None]
  - Fatigue [None]
  - Heart rate increased [None]
  - Anxiety [None]
  - Menstruation irregular [None]

NARRATIVE: CASE EVENT DATE: 20190518
